FAERS Safety Report 8928983 (Version 1)
Quarter: 2012Q4

REPORT INFORMATION
  Report Type: Spontaneous
  Country: US (occurrence: None)
  Receive Date: 20121126
  Receipt Date: 20121126
  Transmission Date: 20130627
  Serious: Yes (Life-Threatening)
  Sender: FDA-Public Use
  Company Number: None

PATIENT
  Age: 85 Year
  Sex: Female
  Weight: 68.04 kg

DRUGS (1)
  1. CIPRO [Suspect]

REACTIONS (8)
  - Drug ineffective [None]
  - Feeling abnormal [None]
  - Fungal infection [None]
  - Bladder irritation [None]
  - Amnesia [None]
  - Alopecia [None]
  - Oedema [None]
  - Walking aid user [None]
